FAERS Safety Report 4930284-2 (Version None)
Quarter: 2006Q1

REPORT INFORMATION
  Report Type: 
  Country: None (occurrence: None)
  Receive Date: 20060227
  Receipt Date: 20060221
  Transmission Date: 20060701
  Serious: Yes (Hospitalization)
  Sender: FDA-Public Use
  Company Number: 2005BI022614

PATIENT
  Sex: Female
  Weight: 45.3597 kg

DRUGS (1)
  1. AVONEX [Suspect]
     Indication: MULTIPLE SCLEROSIS

REACTIONS (8)
  - ANKLE FRACTURE [None]
  - COORDINATION ABNORMAL [None]
  - FALL [None]
  - LIGAMENT INJURY [None]
  - LOWER LIMB FRACTURE [None]
  - SCIATICA [None]
  - WEIGHT DECREASED [None]
  - WRIST FRACTURE [None]
